FAERS Safety Report 20202584 (Version 2)
Quarter: 2021Q4

REPORT INFORMATION
  Report Type: Spontaneous
  Country: US (occurrence: US)
  Receive Date: 20211218
  Receipt Date: 20211223
  Transmission Date: 20220303
  Serious: No
  Sender: FDA-Public Use
  Company Number: US-SANOFI-00893138

PATIENT
  Age: 75 Year
  Sex: Female

DRUGS (1)
  1. DUPIXENT [Suspect]
     Active Substance: DUPILUMAB
     Indication: Dermatitis atopic
     Dosage: 300 MG

REACTIONS (4)
  - Injection site pain [Unknown]
  - Incorrect dose administered by device [Unknown]
  - Injection site haemorrhage [Unknown]
  - Scar [Unknown]

NARRATIVE: CASE EVENT DATE: 20211130
